FAERS Safety Report 22592920 (Version 1)
Quarter: 2023Q2

REPORT INFORMATION
  Report Type: Report from Study
  Country: GB (occurrence: GB)
  Receive Date: 20230613
  Receipt Date: 20230613
  Transmission Date: 20230722
  Serious: Yes (Other)
  Sender: FDA-Public Use
  Company Number: GB-002147023-NVSC2023GB133026

PATIENT
  Sex: Female

DRUGS (1)
  1. AIMOVIG [Suspect]
     Active Substance: ERENUMAB-AOOE
     Indication: Migraine
     Dosage: UNK
     Route: 058

REACTIONS (6)
  - Oropharyngeal blistering [Unknown]
  - Wheezing [Unknown]
  - Pharyngeal swelling [Unknown]
  - Swelling face [Unknown]
  - Injection site swelling [Unknown]
  - Rash [Unknown]
